FAERS Safety Report 4277280-9 (Version None)
Quarter: 2004Q1

REPORT INFORMATION
  Report Type: 
  Country: None (occurrence: None)
  Receive Date: 20040113
  Receipt Date: 20031231
  Transmission Date: 20041129
  Serious: Yes (Death, Other)
  Sender: FDA-Public Use
  Company Number: 12474383

PATIENT
  Age: 72 Year
  Sex: Male

DRUGS (1)
  1. CARMUSTINE [Suspect]

REACTIONS (4)
  - BRONCHIECTASIS [None]
  - DIFFUSE ALVEOLAR DAMAGE [None]
  - PULMONARY FIBROSIS [None]
  - RESPIRATORY FAILURE [None]
